FAERS Safety Report 15591198 (Version 2)
Quarter: 2019Q1

REPORT INFORMATION
  Report Type: Spontaneous
  Country: US (occurrence: US)
  Receive Date: 20181106
  Receipt Date: 20190306
  Transmission Date: 20190417
  Serious: Yes (Other)
  Sender: FDA-Public Use
  Company Number: US-PFIZER INC-2018442761

PATIENT
  Age: 40 Year
  Sex: Male
  Weight: 86 kg

DRUGS (2)
  1. CYMBALTA [Concomitant]
     Active Substance: DULOXETINE HYDROCHLORIDE
     Dosage: UNK
  2. LYRICA [Suspect]
     Active Substance: PREGABALIN
     Indication: SPINAL OPERATION
     Dosage: 150 MG, 2X/DAY
     Dates: end: 20190222

REACTIONS (14)
  - Dyspnoea [Unknown]
  - Fatigue [Not Recovered/Not Resolved]
  - Malaise [Unknown]
  - Product use in unapproved indication [Unknown]
  - Panic attack [Unknown]
  - Pain [Unknown]
  - Memory impairment [Unknown]
  - Disturbance in attention [Unknown]
  - Depression [Unknown]
  - Anger [Unknown]
  - Feeling abnormal [Unknown]
  - Hunger [Unknown]
  - Disorientation [Unknown]
  - Suicidal ideation [Unknown]

NARRATIVE: CASE EVENT DATE: 201902
